FAERS Safety Report 11512462 (Version 2)
Quarter: 2015Q3

REPORT INFORMATION
  Report Type: Spontaneous
  Country: FR (occurrence: FR)
  Receive Date: 20150916
  Receipt Date: 20150928
  Transmission Date: 20151125
  Serious: Yes (Life-Threatening)
  Sender: FDA-Public Use
  Company Number: FR-SA-2015SA138922

PATIENT
  Age: 63 Year
  Sex: Male

DRUGS (11)
  1. LOVENOX [Suspect]
     Active Substance: ENOXAPARIN SODIUM
     Route: 042
     Dates: start: 20150518, end: 20150604
  2. LAROXYL [Suspect]
     Active Substance: AMITRIPTYLINE
     Dosage: DOSE, FREQUENCY AND FORM : 5-0-10 DROPS
     Route: 048
     Dates: start: 20150518, end: 20150604
  3. INEXIUM [Suspect]
     Active Substance: ESOMEPRAZOLE
     Route: 048
     Dates: start: 20150518, end: 20150604
  4. RIFADINE [Suspect]
     Active Substance: RIFAMPIN
     Route: 042
     Dates: start: 20150523, end: 20150526
  5. MORPHINE [Concomitant]
     Active Substance: MORPHINE
     Dates: start: 20150530
  6. LYRICA [Suspect]
     Active Substance: PREGABALIN
     Dosage: DOSE AND FREQUENCY: 50+75 MG 1-0-1
     Route: 048
     Dates: start: 20150520, end: 20150604
  7. ORBENINE [Suspect]
     Active Substance: CLOXACILLIN SODIUM
     Route: 042
     Dates: start: 20150523, end: 20150604
  8. GENTAMICIN. [Suspect]
     Active Substance: GENTAMICIN
     Dosage: ROUTE: V
     Dates: start: 20150527, end: 20150531
  9. PERFALGAN [Suspect]
     Active Substance: ACETAMINOPHEN
     Route: 042
     Dates: start: 20150518, end: 20150605
  10. ACUPAN [Concomitant]
     Active Substance: NEFOPAM HYDROCHLORIDE
     Dates: start: 20150519
  11. SKENAN [Concomitant]
     Active Substance: MORPHINE SULFATE
     Dates: start: 20150522, end: 20150530

REACTIONS (1)
  - Drug reaction with eosinophilia and systemic symptoms [Recovered/Resolved]

NARRATIVE: CASE EVENT DATE: 20150604
